FAERS Safety Report 25271185 (Version 2)
Quarter: 2025Q2

REPORT INFORMATION
  Report Type: Spontaneous
  Country: CN (occurrence: CN)
  Receive Date: 20250506
  Receipt Date: 20250520
  Transmission Date: 20250716
  Serious: Yes (Life-Threatening, Hospitalization, Other)
  Sender: ALKEM
  Company Number: None

PATIENT
  Age: 26 Year
  Sex: Male

DRUGS (5)
  1. QUETIAPINE FUMARATE [Suspect]
     Active Substance: QUETIAPINE FUMARATE
     Indication: Product used for unknown indication
     Dosage: 5 MILLIGRAM, QD (EVERY 1 DAY) (ONE TABLET)
     Route: 065
  2. QUETIAPINE FUMARATE [Suspect]
     Active Substance: QUETIAPINE FUMARATE
     Route: 048
     Dates: start: 20230329
  3. ESTAZOLAM [Concomitant]
     Active Substance: ESTAZOLAM
     Indication: Product used for unknown indication
     Route: 065
  4. VENLAFAXINE HYDROCHLORIDE [Concomitant]
     Active Substance: VENLAFAXINE HYDROCHLORIDE
     Indication: Product used for unknown indication
     Dosage: 75 MILLIGRAM, BID (EVERY 12 HOUR) (SUSTAINED-RELEASE CAPSULES) (TWO TABLETS)
     Route: 065
  5. VORTIOXETINE HYDROBROMIDE [Concomitant]
     Active Substance: VORTIOXETINE HYDROBROMIDE
     Indication: Product used for unknown indication
     Dosage: 10 MILLIGRAM, QD (EVERY 1 DAY) (ONE TABLET)
     Route: 065

REACTIONS (15)
  - Neuropathy peripheral [Recovered/Resolved]
  - Tubulointerstitial nephritis [Recovered/Resolved]
  - Renal tubular disorder [Recovered/Resolved]
  - Renal tubular necrosis [Recovered/Resolved]
  - Anuria [Recovered/Resolved]
  - Long QT syndrome [Recovered/Resolved]
  - Unresponsive to stimuli [Recovered/Resolved]
  - Loss of consciousness [Recovered/Resolved]
  - Coma [Recovered/Resolved]
  - Intentional overdose [Unknown]
  - Toxicity to various agents [Recovered/Resolved]
  - Rhabdomyolysis [Recovered/Resolved]
  - Tachycardia [Recovered/Resolved]
  - Vomiting [Recovered/Resolved]
  - Abdominal pain [Recovered/Resolved]

NARRATIVE: CASE EVENT DATE: 20230329
